FAERS Safety Report 5713197-8 (Version None)
Quarter: 2008Q2

REPORT INFORMATION
  Report Type: 
  Country: None (occurrence: None)
  Receive Date: 20080422
  Receipt Date: 19931013
  Transmission Date: 20081010
  Serious: Yes (Death)
  Sender: FDA-Public Use
  Company Number: DE-ROCHE-26942

PATIENT
  Sex: Male

DRUGS (33)
  1. MYCOPHENOLATE MOFETIL [Suspect]
     Route: 048
     Dates: start: 19930507, end: 19931008
  2. CYCLOSPORINE [Suspect]
     Route: 065
     Dates: start: 19930506
  3. URBASON [Suspect]
     Route: 065
     Dates: start: 19930506
  4. DILTIAZEM [Concomitant]
     Dates: start: 19930506
  5. DOPAMINE HYDROCHLORIDE [Concomitant]
     Dates: start: 19930506, end: 19930608
  6. FRAXIPARIN [Concomitant]
     Dates: start: 19930506, end: 19930611
  7. ISMO [Concomitant]
     Dates: start: 19930506, end: 19930520
  8. BAYMYCARD [Concomitant]
     Dates: start: 19930506, end: 19930509
  9. BELOC MITE [Concomitant]
     Indication: TACHYCARDIA
     Dates: start: 19930506, end: 19930509
  10. CALCIUM CARBONATE [Concomitant]
     Indication: HYPOCALCAEMIA
     Dates: start: 19930506, end: 19930507
  11. CLAFORAN [Concomitant]
     Dates: start: 19930506, end: 19930515
  12. CANDIO-HERMAL [Concomitant]
     Dates: start: 19930506, end: 19930618
  13. AMPHO-MORONAL [Concomitant]
     Dates: start: 19930506, end: 19930616
  14. LASIX [Concomitant]
     Dates: start: 19930506, end: 19930618
  15. ANTRA [Concomitant]
     Indication: PROPHYLAXIS AGAINST GASTROINTESTINAL ULCER
     Dates: start: 19930513
  16. REKAWAN [Concomitant]
     Indication: HYPOKALAEMIA
     Dates: start: 19930527, end: 19930618
  17. HUMAN ALBUMIN SOLUTION [Concomitant]
     Indication: HYPOALBUMINAEMIA
     Dates: start: 19930511, end: 19930601
  18. VANCOMYCIN [Concomitant]
     Indication: WOUND INFECTION
     Dates: start: 19930526, end: 19930529
  19. CYTOTECT [Concomitant]
     Dates: start: 19930531, end: 19930617
  20. BACTISUBTIL [Concomitant]
     Indication: GASTROINTESTINAL DISORDER
     Dates: start: 19930611, end: 19930618
  21. IMODIUM [Concomitant]
     Dates: start: 19930524, end: 19930527
  22. LACTULOSE [Concomitant]
     Indication: GASTROINTESTINAL DISORDER
     Dates: start: 19930511, end: 19930514
  23. CALCIUM-SANDOZ FORTE [Concomitant]
     Indication: HYPOCALCAEMIA
     Dates: start: 19930528, end: 19930617
  24. CALCIUM-SANDOZ FORTE [Concomitant]
     Dates: start: 19930529, end: 19930618
  25. CALCIUM-SANDOZ FORTE [Concomitant]
     Dates: start: 19930528, end: 19930617
  26. CALCIUM-SANDOZ FORTE [Concomitant]
     Dates: start: 19930529, end: 19930618
  27. CALCIUM-SANDOZ FORTE [Concomitant]
     Dates: start: 19930528, end: 19930617
  28. CALCIUM-SANDOZ FORTE [Concomitant]
     Dates: start: 19930529, end: 19930618
  29. PROPULSIN [Concomitant]
     Dates: start: 19930510, end: 19930515
  30. NEPHROTRANS [Concomitant]
     Dates: start: 19930531, end: 19930618
  31. UNACID [Concomitant]
     Dates: start: 19930603, end: 19930607
  32. UNACID [Concomitant]
     Dates: start: 19930603, end: 19930607
  33. CALCIUM [Concomitant]
     Dates: start: 19930528, end: 19930612

REACTIONS (1)
  - SUDDEN CARDIAC DEATH [None]
